FAERS Safety Report 10757824 (Version 1)
Quarter: 2015Q1

REPORT INFORMATION
  Report Type: Spontaneous
  Country: US (occurrence: None)
  Receive Date: 20150202
  Receipt Date: 20150202
  Transmission Date: 20150721
  Serious: No
  Sender: FDA-Public Use
  Company Number: None

PATIENT
  Age: 49 Year
  Sex: Female

DRUGS (1)
  1. METHOTREXATE [Suspect]
     Active Substance: METHOTREXATE

REACTIONS (4)
  - Poor peripheral circulation [None]
  - Paraesthesia [None]
  - Feeling cold [None]
  - Feeling abnormal [None]

NARRATIVE: CASE EVENT DATE: 20150129
